FAERS Safety Report 6634974-5 (Version None)
Quarter: 2010Q1

REPORT INFORMATION
  Report Type: 
  Country: None (occurrence: None)
  Receive Date: 20100312
  Receipt Date: 20100312
  Transmission Date: 20100710
  Serious: Yes (Other)
  Sender: FDA-Public Use
  Company Number: None

PATIENT
  Sex: Male
  Weight: 99.7913 kg

DRUGS (1)
  1. HOMATROPINE METHYLBROMIDE AND HYDROCODONE BITARTRATE [Suspect]
     Indication: COUGH
     Dosage: 1 TEASPOON 6 HRS ORAL
     Route: 048
     Dates: start: 20100112

REACTIONS (1)
  - HEADACHE [None]
